FAERS Safety Report 10785309 (Version 1)
Quarter: 2015Q1

REPORT INFORMATION
  Report Type: Spontaneous
  Country: CA (occurrence: None)
  Receive Date: 20150209
  Receipt Date: 20150209
  Transmission Date: 20150721
  Serious: Yes (Death, Life-Threatening, Hospitalization)
  Sender: FDA-Public Use
  Company Number: IPC201501-000050

PATIENT
  Age: 59 Year
  Sex: Female

DRUGS (5)
  1. CITALOPRAM [Concomitant]
     Active Substance: CITALOPRAM HYDROBROMIDE
  2. NETHOTREXATE [Concomitant]
  3. HYDROCHLOROTHIAZIDE. [Concomitant]
     Active Substance: HYDROCHLOROTHIAZIDE
  4. ATENOLOL. [Concomitant]
     Active Substance: ATENOLOL
  5. HYDROXYCHLOROQUINE SULFATE. [Suspect]
     Active Substance: HYDROXYCHLOROQUINE SULFATE
     Indication: RHEUMATOID ARTHRITIS

REACTIONS (14)
  - Productive cough [None]
  - Cardiotoxicity [None]
  - Oedema peripheral [None]
  - Pleural effusion [None]
  - Pericardial effusion [None]
  - Fall [None]
  - Cardiomegaly [None]
  - Left ventricular hypertrophy [None]
  - Seizure [None]
  - Cardiomyopathy [None]
  - Atrial fibrillation [None]
  - Bundle branch block right [None]
  - Cardiac failure [None]
  - Myocardial fibrosis [None]
